FAERS Safety Report 11209438 (Version 2)
Quarter: 2015Q3

REPORT INFORMATION
  Report Type: Spontaneous
  Country: JP (occurrence: JP)
  Receive Date: 20150622
  Receipt Date: 20150702
  Transmission Date: 20151125
  Serious: Yes (Hospitalization)
  Sender: FDA-Public Use
  Company Number: PHJP2015JP009927

PATIENT
  Age: 72 Year
  Sex: Female
  Weight: 44 kg

DRUGS (5)
  1. ZANTAC [Concomitant]
     Active Substance: RANITIDINE HYDROCHLORIDE
     Indication: PROPHYLAXIS AGAINST GASTROINTESTINAL ULCER
     Dosage: 150 MG, QD
     Route: 048
     Dates: start: 20061110, end: 20110609
  2. TASIGNA [Suspect]
     Active Substance: NILOTINIB
     Dosage: 600 MG, QD
     Route: 048
     Dates: start: 20110810, end: 20111223
  3. ALFAROL [Concomitant]
     Active Substance: ALFACALCIDOL
     Indication: OSTEOPOROSIS PROPHYLAXIS
     Dosage: 1 MG, QD
     Route: 048
     Dates: start: 20061110, end: 20110609
  4. TASIGNA [Suspect]
     Active Substance: NILOTINIB
     Indication: CHRONIC MYELOID LEUKAEMIA
     Dosage: 300 MG, BID
     Route: 048
     Dates: start: 20101029, end: 20110609
  5. PREDNISOLONE. [Suspect]
     Active Substance: PREDNISOLONE
     Indication: ORGANISING PNEUMONIA
     Dosage: 1 MG, QD (DAILY)
     Route: 048
     Dates: start: 20110124

REACTIONS (6)
  - Hemiparesis [Unknown]
  - Vertigo [Unknown]
  - Dyslalia [Unknown]
  - Vomiting [Unknown]
  - Cerebral infarction [Recovering/Resolving]
  - Dysarthria [Unknown]

NARRATIVE: CASE EVENT DATE: 20110608
